FAERS Safety Report 7027034-5 (Version None)
Quarter: 2010Q4

REPORT INFORMATION
  Report Type: 
  Country: None (occurrence: None)
  Receive Date: 20101004
  Receipt Date: 20100928
  Transmission Date: 20110411
  Serious: Yes (Life-Threatening, Hospitalization, Other)
  Sender: FDA-Public Use
  Company Number: US-US-EMD SERONO, INC.-7005532

PATIENT
  Sex: Female
  Weight: 61 kg

DRUGS (5)
  1. REBIF [Suspect]
     Indication: MULTIPLE SCLEROSIS
     Route: 058
     Dates: start: 20100212
  2. NORVASC [Concomitant]
  3. VITAMIN D [Concomitant]
  4. ELAVIL [Concomitant]
     Indication: INSOMNIA
  5. LORTAB [Concomitant]
     Indication: LIMB DISCOMFORT

REACTIONS (12)
  - ACINETOBACTER BACTERAEMIA [None]
  - ACINETOBACTER INFECTION [None]
  - ANAEMIA [None]
  - CHILLS [None]
  - CONFUSIONAL STATE [None]
  - FAECAL INCONTINENCE [None]
  - HALLUCINATION, VISUAL [None]
  - INFLUENZA LIKE ILLNESS [None]
  - INJECTION SITE REACTION [None]
  - MEMORY IMPAIRMENT [None]
  - OXYGEN SATURATION DECREASED [None]
  - PNEUMONIA [None]
